FAERS Safety Report 6443748-X (Version None)
Quarter: 2009Q4

REPORT INFORMATION
  Report Type: 
  Country: None (occurrence: None)
  Receive Date: 20091117
  Receipt Date: 20091111
  Transmission Date: 20100525
  Serious: Yes (Other)
  Sender: FDA-Public Use
  Company Number: US-JNJCH-2009024235

PATIENT
  Sex: Female

DRUGS (2)
  1. SUDAFED 24 HOUR TABLETS [Suspect]
     Indication: NASOPHARYNGITIS
     Dosage: TEXT:UNSPECIFIED
     Route: 048
  2. ANTIHYPERTENSIVES [Concomitant]
     Indication: HYPERTENSION
     Dosage: TEXT:UNKNOWN
     Route: 065

REACTIONS (4)
  - ACTIVITIES OF DAILY LIVING IMPAIRED [None]
  - CEREBROVASCULAR ACCIDENT [None]
  - INCONTINENCE [None]
  - WHEELCHAIR USER [None]
